FAERS Safety Report 7689561-7 (Version None)
Quarter: 2011Q3

REPORT INFORMATION
  Report Type: 
  Country: None (occurrence: None)
  Receive Date: 20110817
  Receipt Date: 20110812
  Transmission Date: 20111222
  Serious: Yes (Other)
  Sender: FDA-Public Use
  Company Number: ES-ROXANE LABORATORIES, INC.-2011-RO-01142RO

PATIENT
  Age: 17 Year
  Sex: Male

DRUGS (21)
  1. QUETIAPINE [Suspect]
     Indication: SELF INJURIOUS BEHAVIOUR
     Dosage: 200 MG
  2. METHOTRIMEPRAZINE [Suspect]
     Indication: ANXIETY
     Dosage: 20 MG
  3. SERTRALINE HYDROCHLORIDE [Suspect]
     Dosage: 150 MG
  4. QUETIAPINE [Suspect]
     Indication: DEPRESSION
  5. QUETIAPINE [Suspect]
     Indication: ANOREXIA NERVOSA
     Dosage: 400 MG
  6. FLUOXETINE [Suspect]
     Indication: DEPRESSION
  7. METHOTRIMEPRAZINE [Suspect]
     Dosage: 62.5 MG
  8. FLUOXETINE [Suspect]
     Indication: ANOREXIA NERVOSA
  9. QUETIAPINE [Suspect]
     Indication: PANIC ATTACK
  10. CLONAZEPAM [Suspect]
     Indication: DYSKINESIA
  11. QUETIAPINE [Suspect]
     Indication: AGGRESSION
     Dosage: 100 MG
  12. QUETIAPINE [Suspect]
     Indication: ANXIETY
  13. FLUOXETINE [Suspect]
     Indication: SELF INJURIOUS BEHAVIOUR
  14. FLUOXETINE [Suspect]
     Indication: ANXIETY
  15. BIPERIDEN [Suspect]
     Indication: DYSKINESIA
  16. LORAZEPAM [Suspect]
     Indication: INSOMNIA
  17. LORAZEPAM [Suspect]
  18. FLUOXETINE [Suspect]
     Indication: PANIC ATTACK
  19. TETRAZEPAM [Suspect]
     Indication: DYSKINESIA
  20. DIAZEPAM [Suspect]
     Indication: DYSKINESIA
  21. FLUOXETINE [Suspect]
     Indication: AGGRESSION

REACTIONS (2)
  - DYSKINESIA [None]
  - DRUG INEFFECTIVE [None]
